FAERS Safety Report 10777430 (Version 1)
Quarter: 2015Q1

REPORT INFORMATION
  Report Type: Spontaneous
  Country: US (occurrence: US)
  Receive Date: 20150209
  Receipt Date: 20150209
  Transmission Date: 20150721
  Serious: No
  Sender: FDA-Public Use
  Company Number: US-PFIZER INC-2015048093

PATIENT
  Sex: Male

DRUGS (1)
  1. DEPO-TESTOSTERONE [Suspect]
     Active Substance: TESTOSTERONE CYPIONATE
     Dosage: UNK

REACTIONS (5)
  - Psychomotor hyperactivity [Unknown]
  - Mood swings [Unknown]
  - Agitation [Unknown]
  - Abnormal behaviour [Unknown]
  - Feeling abnormal [Unknown]
